FAERS Safety Report 12334173 (Version 3)
Quarter: 2016Q2

REPORT INFORMATION
  Report Type: Spontaneous
  Country: US (occurrence: US)
  Receive Date: 20160504
  Receipt Date: 20160621
  Transmission Date: 20160815
  Serious: No
  Sender: FDA-Public Use
  Company Number: US-009507513-1605USA000747

PATIENT
  Age: 69 Year
  Sex: Female
  Weight: 53.61 kg

DRUGS (5)
  1. EMEND [Suspect]
     Active Substance: APREPITANT
     Indication: PROPHYLAXIS OF NAUSEA AND VOMITING
     Dosage: AFTER CHEMOTHERAPY
     Route: 048
     Dates: start: 20160427, end: 20160428
  2. EMEND [Suspect]
     Active Substance: APREPITANT
     Indication: PROPHYLAXIS OF NAUSEA AND VOMITING
     Dosage: 120 MG BY MOUTH ONE HOUR PRIOR TO START OF CHEMOTHERAPY
     Route: 048
     Dates: start: 20160425, end: 20160425
  3. DOXORUBICIN [Concomitant]
     Active Substance: DOXORUBICIN
     Indication: CHEMOTHERAPY
     Dosage: UNK
     Dates: start: 20160425
  4. CISPLATIN. [Concomitant]
     Active Substance: CISPLATIN
     Indication: CHEMOTHERAPY
     Dosage: UNK
     Dates: start: 20160425
  5. EMEND [Suspect]
     Active Substance: APREPITANT
     Dosage: AFTER CHEMOTHERAPY
     Route: 048
     Dates: start: 20160426

REACTIONS (2)
  - Headache [Recovered/Resolved]
  - Headache [Recovered/Resolved]

NARRATIVE: CASE EVENT DATE: 20160425
